FAERS Safety Report 5615514-6 (Version None)
Quarter: 2008Q1

REPORT INFORMATION
  Report Type: 
  Country: None (occurrence: None)
  Receive Date: 20080206
  Receipt Date: 20080206
  Transmission Date: 20080703
  Serious: Yes (Other)
  Sender: FDA-Public Use
  Company Number: A0707758A

PATIENT

DRUGS (1)
  1. ALLI [Suspect]

REACTIONS (3)
  - DEPRESSION [None]
  - DRUG INTERACTION [None]
  - HYPOMANIA [None]
